FAERS Safety Report 26074849 (Version 1)
Quarter: 2025Q4

REPORT INFORMATION
  Report Type: Spontaneous
  Country: EU (occurrence: EU)
  Receive Date: 20251121
  Receipt Date: 20251121
  Transmission Date: 20260118
  Serious: Yes (Hospitalization)
  Sender: RANBAXY
  Company Number: EU-AFSSAPS-TS2025000831

PATIENT
  Age: 33 Year
  Sex: Female
  Weight: 80 kg

DRUGS (3)
  1. CEFTRIAXONE [Suspect]
     Active Substance: CEFTRIAXONE
     Indication: Infection
     Dosage: 1 GRAM, QD
     Route: 040
     Dates: start: 20250715, end: 20250717
  2. ACETAMINOPHEN [Suspect]
     Active Substance: ACETAMINOPHEN
     Indication: Pain
     Dosage: UNK
     Route: 065
     Dates: end: 20250720
  3. KETAMINE [Suspect]
     Active Substance: KETAMINE
     Indication: Pain
     Dosage: UNK
     Route: 040
     Dates: start: 20250717, end: 20250719

REACTIONS (1)
  - Hepatitis [Recovering/Resolving]

NARRATIVE: CASE EVENT DATE: 20250720
